FAERS Safety Report 16797600 (Version 1)
Quarter: 2019Q3

REPORT INFORMATION
  Report Type: Spontaneous
  Country: NL (occurrence: NL)
  Receive Date: 20190912
  Receipt Date: 20190912
  Transmission Date: 20191005
  Serious: Yes (Other)
  Sender: FDA-Public Use
  Company Number: NL-TEVA-2019-NL-1104693

PATIENT
  Age: 68 Year
  Sex: Female
  Weight: 65 kg

DRUGS (11)
  1. OCULOTECT 50 MG/ML OOGDR 10 ML [Concomitant]
     Dosage: 2 TIMES 1 DROP IN BOTH EYES ; 1GTT EVERY 12HOURS
     Dates: start: 20160711
  2. XYLOMETAZOLINE NEUSSPRAY 1 MG/ML [Concomitant]
     Dosage: USE THE PACKAGE LEAFLET ACCORDING TO INSTRUCTIONS
     Dates: start: 20000508
  3. KEPPRA 500 MG TAB FO [Concomitant]
     Dosage: 2 DD 3
     Dates: start: 20011005
  4. LIPOSIC 2MG/G OOGGEL CARBOMEER OOGGEL 2MG/G (CARBOMEER 980) [Concomitant]
     Dosage: APPLY ONCE A DAY ; 1DOSAGE FORM PER DAY
     Dates: start: 20070316
  5. NOOTROPIL 1200 MG TABLET [Concomitant]
     Dosage: 1200MG PER DAY
     Dates: start: 20000830
  6. AMOXICILLINE/CLAVULAANZUUR TABLET, 500/125 MG (MILLIGRAM) [Suspect]
     Active Substance: AMOXICILLIN\CLAVULANATE POTASSIUM
     Indication: SKIN INFECTION
     Dosage: 3 TIMES A DAY 1 TABLET ; 1DOSAGE FORM EVERY 8HOURS
     Dates: start: 20190722, end: 20190727
  7. VIMPAT 50 MG TAB OMHULD [Concomitant]
     Dosage: 50MG EVERY 12HOURS
     Dates: start: 20100401
  8. LACTULOSE STROOP 670 MG/ML  (500 MG/G) [Concomitant]
     Dosage: USE THE PACKAGE LEAFLET ACCORDING TO INSTRUCTIONS
     Dates: start: 20190614
  9. LANETTE I CREME [Concomitant]
     Dosage: 2-3 X DAILY CREAM
     Dates: start: 20190517
  10. LAMICTAL DISP/KAUW 25 MG TB [Concomitant]
     Dosage: 2 DD 1 25MG EVERY 12HOURS
     Dates: start: 20150612
  11. LAMICTAL KAUW/DISP 200 MG TB [Concomitant]
     Dosage: 200MG EVERY 12HOURS
     Dates: start: 20150612

REACTIONS (1)
  - Epilepsy [Recovered/Resolved]

NARRATIVE: CASE EVENT DATE: 20190727
